FAERS Safety Report 17708035 (Version 1)
Quarter: 2020Q2

REPORT INFORMATION
  Report Type: Spontaneous
  Country: DE (occurrence: DE)
  Receive Date: 20200425
  Receipt Date: 20200425
  Transmission Date: 20200714
  Serious: Yes (Other)
  Sender: FDA-Public Use
  Company Number: DE-TEVA-2020-DE-1229219

PATIENT
  Age: 34 Year
  Sex: Female
  Weight: 153 kg

DRUGS (13)
  1. PREDNISOLON [Suspect]
     Active Substance: PREDNISOLONE
     Dosage: 7.5 MILLIGRAM DAILY;
     Route: 065
  2. ACICLOVIR 200 MG [Concomitant]
  3. ENATONE GYN [Concomitant]
     Dates: start: 201701, end: 201904
  4. PANTOZOL [Concomitant]
     Active Substance: PANTOPRAZOLE SODIUM
  5. ALLOPURINOL. [Concomitant]
     Active Substance: ALLOPURINOL
  6. FOLSAN [Concomitant]
     Active Substance: FOLIC ACID
  7. DEKRISTOL [Concomitant]
     Active Substance: CHOLECALCIFEROL
  8. COTRIM FORTE 960 MG [Concomitant]
  9. ADVANTAN [Concomitant]
     Active Substance: METHYLPREDNISOLONE ACEPONATE
  10. TOREM [Concomitant]
     Active Substance: TORSEMIDE
  11. TACROLIMUS. [Suspect]
     Active Substance: TACROLIMUS
     Route: 065
  12. NOXAFIL [Suspect]
     Active Substance: POSACONAZOLE
     Route: 065
  13. URSOFALC [Concomitant]

REACTIONS (2)
  - Deep vein thrombosis [Unknown]
  - Pulmonary embolism [Unknown]

NARRATIVE: CASE EVENT DATE: 20190215
